FAERS Safety Report 12551637 (Version 2)
Quarter: 2016Q3

REPORT INFORMATION
  Report Type: Spontaneous
  Country: CA (occurrence: CA)
  Receive Date: 20160713
  Receipt Date: 20160812
  Transmission Date: 20161109
  Serious: Yes (Life-Threatening, Other)
  Sender: FDA-Public Use
  Company Number: CA-ASTRAZENECA-2016SE74395

PATIENT
  Age: 74 Year
  Sex: Female

DRUGS (4)
  1. NEXIUM [Suspect]
     Active Substance: ESOMEPRAZOLE MAGNESIUM
     Indication: ABDOMINAL DISCOMFORT
     Route: 048
     Dates: start: 20160721
  2. NEXIUM [Suspect]
     Active Substance: ESOMEPRAZOLE MAGNESIUM
     Indication: ABDOMINAL DISCOMFORT
     Route: 048
     Dates: end: 20160706
  3. NEXIUM [Suspect]
     Active Substance: ESOMEPRAZOLE MAGNESIUM
     Indication: GASTROOESOPHAGEAL REFLUX DISEASE
     Route: 048
     Dates: end: 20160706
  4. NEXIUM [Suspect]
     Active Substance: ESOMEPRAZOLE MAGNESIUM
     Indication: GASTROOESOPHAGEAL REFLUX DISEASE
     Route: 048
     Dates: start: 20160721

REACTIONS (10)
  - Diverticular perforation [Recovered/Resolved]
  - Aortic arteriosclerosis [Unknown]
  - Intervertebral disc degeneration [Unknown]
  - Diverticulum intestinal [Not Recovered/Not Resolved]
  - Atelectasis [Unknown]
  - Biliary dilatation [Unknown]
  - Kyphosis [Unknown]
  - Scar [Unknown]
  - Pleural effusion [Unknown]
  - Dilatation intrahepatic duct acquired [Unknown]

NARRATIVE: CASE EVENT DATE: 201403
